FAERS Safety Report 5251794-7 (Version None)
Quarter: 2007Q1

REPORT INFORMATION
  Report Type: 
  Country: None (occurrence: None)
  Receive Date: 20070228
  Receipt Date: 20070216
  Transmission Date: 20070707
  Serious: Yes (Hospitalization)
  Sender: FDA-Public Use
  Company Number: FR-PFIZER INC-2007013745

PATIENT
  Age: 43 Year
  Sex: Female

DRUGS (3)
  1. RELPAX [Suspect]
     Indication: MIGRAINE
     Route: 048
  2. STABLON [Suspect]
     Indication: DYSTHYMIC DISORDER
     Route: 048
  3. RIVOTRIL [Suspect]
     Indication: GENERALISED NON-CONVULSIVE EPILEPSY
     Route: 048

REACTIONS (1)
  - DRUG ABUSER [None]
